FAERS Safety Report 8970778 (Version 1)
Quarter: 2012Q4

REPORT INFORMATION
  Report Type: 
  Country: IE (occurrence: IE)
  Receive Date: 20121218
  Receipt Date: 20121218
  Transmission Date: 20130627
  Serious: Yes (Other)
  Sender: FDA-Public Use
  Company Number: IE-009507513-1212IRL003810

PATIENT
  Sex: Male

DRUGS (6)
  1. COZAAR [Suspect]
     Indication: HYPERTENSION
     Dosage: 100 mg, UNK
     Route: 048
     Dates: start: 20120912, end: 2012
  2. XANAX [Concomitant]
     Indication: DEMENTIA
     Dosage: 0.5 mg, prn
     Route: 048
  3. EBIXA [Concomitant]
     Indication: DEMENTIA
     Route: 048
  4. NU-SEALS [Concomitant]
     Indication: DEMENTIA
     Route: 048
  5. SEROQUEL [Concomitant]
     Indication: DEMENTIA
     Dosage: 50mg morning and 25mg nightly
     Route: 048
  6. REMINYL [Concomitant]
     Indication: DEMENTIA
     Route: 048

REACTIONS (7)
  - Mastication disorder [Recovered/Resolved]
  - Eye disorder [Recovered/Resolved]
  - Dyskinesia [Recovered/Resolved]
  - Insomnia [Recovered/Resolved]
  - Constipation [Recovered/Resolved]
  - Dysphagia [Recovered/Resolved]
  - Diarrhoea [Recovered/Resolved]
